FAERS Safety Report 9587446 (Version 3)
Quarter: 2013Q4

REPORT INFORMATION
  Report Type: Spontaneous
  Country: IL (occurrence: IL)
  Receive Date: 20131003
  Receipt Date: 20131214
  Transmission Date: 20140711
  Serious: Yes (Death, Hospitalization)
  Sender: FDA-Public Use
  Company Number: IL-IPSEN BIOPHARMACEUTICALS, INC.-2013-4361

PATIENT
  Age: 56 Year
  Sex: Female

DRUGS (2)
  1. SOMATULINE AUTOGEL 120MG [Suspect]
     Indication: NEUROENDOCRINE TUMOUR
     Dosage: 120 MG
     Route: 058
  2. STRAIFET [Suspect]
     Indication: CHRONIC MYELOID LEUKAEMIA
     Dosage: NOT REPORTED
     Route: 065

REACTIONS (3)
  - Death [Fatal]
  - Sepsis [Not Recovered/Not Resolved]
  - Haemorrhage [Not Recovered/Not Resolved]
